FAERS Safety Report 7682047-5 (Version None)
Quarter: 2011Q3

REPORT INFORMATION
  Report Type: 
  Country: None (occurrence: None)
  Receive Date: 20110809
  Receipt Date: 20110801
  Transmission Date: 20111222
  Serious: Yes (Other)
  Sender: FDA-Public Use
  Company Number: 2011SP036335

PATIENT
  Sex: Female

DRUGS (1)
  1. CERAZETTE (DESOGESTREL /00754001/) [Suspect]
     Indication: CONTRACEPTION

REACTIONS (4)
  - POLYCYSTIC OVARIES [None]
  - HIRSUTISM [None]
  - DEPRESSION [None]
  - HORMONE LEVEL ABNORMAL [None]
